FAERS Safety Report 13803325 (Version 2)
Quarter: 2017Q3

REPORT INFORMATION
  Report Type: Spontaneous
  Country: US (occurrence: US)
  Receive Date: 20170728
  Receipt Date: 20170809
  Transmission Date: 20171127
  Serious: Yes (Other)
  Sender: FDA-Public Use
  Company Number: US-AMGEN-USASP2017111625

PATIENT
  Age: 60 Year
  Sex: Female

DRUGS (1)
  1. REPATHA [Suspect]
     Active Substance: EVOLOCUMAB
     Indication: HYPERCHOLESTEROLAEMIA
     Dosage: 140 MG, Q2WK
     Route: 058
     Dates: start: 20170505

REACTIONS (13)
  - Humerus fracture [Unknown]
  - Spinal fracture [Unknown]
  - Seizure [Unknown]
  - Accidental exposure to product [Unknown]
  - Stress [Unknown]
  - Limb discomfort [Unknown]
  - Multiple fractures [Unknown]
  - Fall [Unknown]
  - Anxiety [Unknown]
  - Wrong technique in product usage process [Unknown]
  - Back pain [Unknown]
  - Injury associated with device [Unknown]
  - Blood pressure increased [Unknown]

NARRATIVE: CASE EVENT DATE: 201706
